FAERS Safety Report 8560848-9 (Version None)
Quarter: 2012Q3

REPORT INFORMATION
  Report Type: 
  Country: None (occurrence: None)
  Receive Date: 20120802
  Receipt Date: 20120724
  Transmission Date: 20120928
  Serious: Yes (Other)
  Sender: FDA-Public Use
  Company Number: US-ASTRAZENECA-2011SE33828

PATIENT
  Age: 55 Year
  Sex: Female

DRUGS (3)
  1. TOPROL-XL [Suspect]
     Dosage: GENERIC
     Route: 048
  2. PRILOSEC [Suspect]
     Route: 048
  3. NEXIUM [Suspect]
     Route: 048

REACTIONS (7)
  - OEDEMA PERIPHERAL [None]
  - DRUG INEFFECTIVE [None]
  - PAIN [None]
  - PALPITATIONS [None]
  - DRUG DOSE OMISSION [None]
  - VENOUS INSUFFICIENCY [None]
  - BARRETT'S OESOPHAGUS [None]
